FAERS Safety Report 25078421 (Version 1)
Quarter: 2025Q1

REPORT INFORMATION
  Report Type: Spontaneous
  Country: US (occurrence: None)
  Receive Date: 20250313
  Receipt Date: 20250313
  Transmission Date: 20250409
  Serious: Yes (Hospitalization)
  Sender: FDA-CTU
  Company Number: None

PATIENT
  Age: 67 Year
  Sex: Male

DRUGS (1)
  1. LENALIDOMIDE [Suspect]
     Active Substance: LENALIDOMIDE
     Indication: Plasma cell myeloma
     Dosage: 10MG QD ORAL
     Route: 048
     Dates: start: 20241218, end: 20250307

REACTIONS (4)
  - Peripheral swelling [None]
  - Deep vein thrombosis [None]
  - Musculoskeletal pain [None]
  - Therapy interrupted [None]

NARRATIVE: CASE EVENT DATE: 20250307
